FAERS Safety Report 7078778-0 (Version None)
Quarter: 2010Q4

REPORT INFORMATION
  Report Type: 
  Country: None (occurrence: None)
  Receive Date: 20101102
  Receipt Date: 20101021
  Transmission Date: 20110411
  Serious: Yes (Other)
  Sender: FDA-Public Use
  Company Number: CO-PFIZER INC-2010134608

PATIENT
  Age: 77 Year
  Sex: Male

DRUGS (4)
  1. ZOLOFT [Suspect]
     Indication: DEPRESSION
     Dosage: 50 MG, 1X/DAY
     Route: 048
     Dates: start: 20000101
  2. ZOLOFT [Suspect]
     Dosage: 100 MG, EVERYDAY
  3. OMEPRAZOLE [Concomitant]
     Indication: GASTRITIS
     Dosage: 20 MG, 1X/DAY
     Route: 048
  4. PLASIL [Concomitant]
     Indication: REFLUX GASTRITIS
     Dosage: UNK

REACTIONS (3)
  - ALCOHOL USE [None]
  - ANGIOPLASTY [None]
  - CARDIOMYOPATHY ALCOHOLIC [None]
